FAERS Safety Report 19417920 (Version 1)
Quarter: 2021Q2

REPORT INFORMATION
  Report Type: Report from Study
  Country: US (occurrence: US)
  Receive Date: 20210615
  Receipt Date: 20210615
  Transmission Date: 20210717
  Serious: Yes (Hospitalization)
  Sender: FDA-Public Use
  Company Number: US-CHIESI-2021CHF02938

PATIENT
  Age: 82 Year
  Sex: Male
  Weight: 58.8 kg

DRUGS (4)
  1. KENGREAL [Suspect]
     Active Substance: CANGRELOR
     Dosage: 0.75 UNK
     Route: 042
     Dates: start: 20210403, end: 20210403
  2. KENGREAL [Suspect]
     Active Substance: CANGRELOR
     Indication: ANTIPLATELET THERAPY
     Dosage: 32.40 MICROGRAM/KILOGRAM, (1X)
     Route: 040
     Dates: start: 20210403, end: 20210403
  3. KENGREAL [Suspect]
     Active Substance: CANGRELOR
     Indication: OFF LABEL USE
     Dosage: 4 UNK
     Route: 042
     Dates: start: 20210403, end: 20210403
  4. KENGREAL [Suspect]
     Active Substance: CANGRELOR
     Dosage: 0 MICROGRAM/KILOGRAM, (1X)
     Route: 040
     Dates: start: 20210403, end: 20210403

REACTIONS (3)
  - Off label use [Recovered/Resolved]
  - Vascular access site haemorrhage [Unknown]
  - Pericardial effusion [Unknown]

NARRATIVE: CASE EVENT DATE: 20210403
